FAERS Safety Report 25423266 (Version 1)
Quarter: 2025Q2

REPORT INFORMATION
  Report Type: Spontaneous
  Country: US (occurrence: US)
  Receive Date: 20250611
  Receipt Date: 20250611
  Transmission Date: 20250716
  Serious: No
  Sender: PIERRE FABRE MEDICAMENT
  Company Number: US-PFM-2024-06116

PATIENT
  Age: 3 Month
  Weight: 7.2 kg

DRUGS (3)
  1. PROPRANOLOL [Suspect]
     Active Substance: PROPRANOLOL HYDROCHLORIDE
     Indication: Infantile haemangioma
  2. PROPRANOLOL [Suspect]
     Active Substance: PROPRANOLOL HYDROCHLORIDE
     Dosage: 3.5 MG (0.88?ML) TWICE DAILY FOR THE FOLLOWING 6 DAYS (0.97 MG/KG/DAY)
  3. PROPRANOLOL [Suspect]
     Active Substance: PROPRANOLOL HYDROCHLORIDE
     Dosage: 7.5 MG (1.88?ML) TWICE DAILY (2.1 MG/KG/DAY) FOR THE MAINTENANCE DOSE

REACTIONS (2)
  - Intercepted product dispensing error [Unknown]
  - Product confusion [Unknown]
